FAERS Safety Report 7922073 (Version 7)
Quarter: 2013Q4

REPORT INFORMATION
  Report Type: Spontaneous
  Country: US (occurrence: US)
  Receive Date: 20110429
  Receipt Date: 20131217
  Transmission Date: 20140711
  Serious: Yes (Other)
  Sender: FDA-Public Use
  Company Number: US-ASTRAZENECA-2011SE00296

PATIENT
  Age: 53 Year
  Sex: Female
  Weight: 50.8 kg

DRUGS (22)
  1. NEXIUM [Suspect]
     Indication: GASTROOESOPHAGEAL REFLUX DISEASE
     Route: 048
     Dates: start: 2009, end: 201307
  2. BUDESONIDE/FORMOTEROL [Suspect]
     Route: 065
  3. PRAVASTATIN [Concomitant]
     Indication: BLOOD CHOLESTEROL ABNORMAL
     Dosage: HS
     Route: 048
  4. CARVEDILOL [Concomitant]
     Indication: CARDIAC DISORDER
     Route: 048
  5. SYMBALTA [Concomitant]
     Indication: DEPRESSION
     Route: 048
  6. GABAPENTIN [Concomitant]
     Indication: OSTEOPOROSIS
     Dosage: TID
     Route: 048
  7. HYDROCODONE [Concomitant]
     Indication: OSTEOPOROSIS
     Dosage: TID
     Route: 048
  8. INHALERS [Concomitant]
     Indication: CHRONIC OBSTRUCTIVE PULMONARY DISEASE
     Route: 055
  9. OXYGEN [Concomitant]
     Indication: CHRONIC OBSTRUCTIVE PULMONARY DISEASE
     Route: 045
  10. OXYBUTYNIN [Concomitant]
     Indication: BLADDER DISORDER
  11. FLEXERIL [Concomitant]
  12. ANCEF [Concomitant]
  13. PERCOCET [Concomitant]
  14. ENABLEX [Concomitant]
  15. PROZAC [Concomitant]
  16. SPIRIVA [Concomitant]
  17. PROAIR HFA [Concomitant]
  18. SINGULAIR [Concomitant]
  19. CYCLOBENZAPRINE HCL [Concomitant]
     Route: 048
  20. VESICARE [Concomitant]
     Route: 048
  21. FLONASE [Concomitant]
     Route: 055
  22. SIMVASTATIN [Concomitant]
     Route: 048

REACTIONS (36)
  - Precancerous cells present [Unknown]
  - Hyperchlorhydria [Unknown]
  - Gastrooesophageal reflux disease [Unknown]
  - Abdominal pain upper [Recovering/Resolving]
  - Nausea [Recovering/Resolving]
  - Osteoporosis [Unknown]
  - Sleep disorder due to general medical condition, insomnia type [Unknown]
  - Gastric disorder [Unknown]
  - Pharyngeal disorder [Unknown]
  - Dysphagia [Unknown]
  - Dysphonia [Unknown]
  - Dyspepsia [Unknown]
  - Aphonia [Unknown]
  - Weight decreased [Unknown]
  - Drug hypersensitivity [Unknown]
  - Lymphadenopathy [Unknown]
  - Cardiac murmur [Unknown]
  - Heart rate irregular [Unknown]
  - Chest pain [Unknown]
  - Bladder disorder [Unknown]
  - Musculoskeletal disorder [Unknown]
  - Hypoaesthesia [Unknown]
  - Hypoaesthesia [Unknown]
  - Dysuria [Unknown]
  - Gastrointestinal disorder [Unknown]
  - Cough [Unknown]
  - Dysphagia [Unknown]
  - Abdominal pain upper [Unknown]
  - Headache [Unknown]
  - Dizziness [Unknown]
  - Muscular weakness [Unknown]
  - Retching [Unknown]
  - Constipation [Unknown]
  - Diarrhoea [Unknown]
  - Intentional drug misuse [Unknown]
  - Drug dose omission [Unknown]
